FAERS Safety Report 5888269-8 (Version None)
Quarter: 2008Q3

REPORT INFORMATION
  Report Type: 
  Country: None (occurrence: None)
  Receive Date: 20080918
  Receipt Date: 20080916
  Transmission Date: 20090109
  Serious: Yes (Life-Threatening, Hospitalization, Other)
  Sender: FDA-Public Use
  Company Number: US-ASTRAZENECA-2008UW19181

PATIENT
  Age: 78 Year
  Sex: Male
  Weight: 92.3 kg

DRUGS (11)
  1. ATACAND [Suspect]
     Indication: HYPERTENSION
     Route: 048
     Dates: start: 20050712
  2. ATACAND [Suspect]
     Route: 048
     Dates: start: 20060714
  3. ATACAND [Suspect]
     Route: 048
     Dates: end: 20080813
  4. ATACAND [Suspect]
     Route: 048
     Dates: start: 20080814, end: 20080823
  5. ATACAND [Suspect]
     Route: 048
     Dates: start: 20080824
  6. MULTIVITAMIN [Concomitant]
  7. TOPROL-XL [Concomitant]
     Route: 048
     Dates: start: 20040101
  8. TRICOR [Concomitant]
     Dates: start: 20040101
  9. ASPIRIN [Concomitant]
     Dates: start: 20040101
  10. GLUCO/CHOND [Concomitant]
     Dates: start: 20080109
  11. LIPITOR [Concomitant]
     Dates: start: 20080814

REACTIONS (1)
  - ORTHOSTATIC HYPERTENSION [None]
